FAERS Safety Report 23573305 (Version 1)
Quarter: 2024Q1

REPORT INFORMATION
  Report Type: Spontaneous
  Country: US (occurrence: US)
  Receive Date: 20240228
  Receipt Date: 20240228
  Transmission Date: 20240410
  Serious: Yes (Hospitalization, Other)
  Sender: FDA-Public Use
  Company Number: US-AMGEN-USASP2024036155

PATIENT
  Age: 6 Year
  Sex: Male

DRUGS (14)
  1. BLINATUMOMAB [Suspect]
     Active Substance: BLINATUMOMAB
     Indication: B-cell type acute leukaemia
     Dosage: UNK
     Route: 065
     Dates: start: 2022
  2. SULFAMETHOXAZOLE\TRIMETHOPRIM [Concomitant]
     Active Substance: SULFAMETHOXAZOLE\TRIMETHOPRIM
     Indication: Antifungal prophylaxis
     Dosage: UNK
     Route: 065
  3. ETOPOSIDE [Concomitant]
     Active Substance: ETOPOSIDE
     Indication: B-cell type acute leukaemia
     Dosage: UNK
     Route: 042
     Dates: start: 202302
  4. CYCLOPHOSPHAMIDE [Concomitant]
     Active Substance: CYCLOPHOSPHAMIDE
     Indication: B-cell type acute leukaemia
     Dosage: UNK
     Route: 042
     Dates: start: 202302
  5. MERCAPTOPURINE [Concomitant]
     Active Substance: MERCAPTOPURINE
     Indication: B-cell type acute leukaemia
     Dosage: UNK
     Route: 048
     Dates: start: 202302
  6. MERCAPTOPURINE [Concomitant]
     Active Substance: MERCAPTOPURINE
     Indication: Nocardiosis
  7. METHOTREXATE [Concomitant]
     Active Substance: METHOTREXATE
     Indication: B-cell type acute leukaemia
     Dosage: UNK
     Route: 048
     Dates: start: 202302
  8. METHOTREXATE [Concomitant]
     Active Substance: METHOTREXATE
     Indication: Nocardiosis
     Dosage: UNK
     Route: 029
  9. THIOGUANINE [Concomitant]
     Active Substance: THIOGUANINE
     Indication: B-cell type acute leukaemia
     Dosage: UNK
     Route: 048
     Dates: start: 202302
  10. VINCRISTINE [Concomitant]
     Active Substance: VINCRISTINE
     Indication: B-cell type acute leukaemia
     Dosage: UNK
     Route: 042
     Dates: start: 202302
  11. VINCRISTINE [Concomitant]
     Active Substance: VINCRISTINE
     Indication: Nocardiosis
  12. DEXAMETHASONE [Concomitant]
     Active Substance: DEXAMETHASONE
     Indication: B-cell type acute leukaemia
     Dosage: UNK
     Route: 048
  13. CEFTRIAXONE [Concomitant]
     Active Substance: CEFTRIAXONE\CEFTRIAXONE SODIUM
     Dosage: UNK
     Route: 065
  14. SODIUM CHLORIDE [Concomitant]
     Active Substance: SODIUM CHLORIDE
     Dosage: UNK, 20 ML/KG
     Route: 065

REACTIONS (7)
  - Hypotension [Unknown]
  - Neutropenia [Unknown]
  - Pulmonary nocardiosis [Unknown]
  - Pancytopenia [Unknown]
  - Splenomegaly [Unknown]
  - COVID-19 [Unknown]
  - Pain [Unknown]

NARRATIVE: CASE EVENT DATE: 20220101
